FAERS Safety Report 20631725 (Version 2)
Quarter: 2022Q3

REPORT INFORMATION
  Report Type: Spontaneous
  Country: TN (occurrence: TN)
  Receive Date: 20220324
  Receipt Date: 20220713
  Transmission Date: 20221027
  Serious: Yes (Other)
  Sender: FDA-Public Use
  Company Number: TN-SA-SAC20220304000601

PATIENT
  Age: 8 Year
  Sex: Male

DRUGS (1)
  1. LANTUS [Suspect]
     Active Substance: INSULIN GLARGINE
     Dosage: UNK

REACTIONS (6)
  - Type 1 diabetes mellitus [Unknown]
  - Burning sensation [Not Recovered/Not Resolved]
  - Pain [Unknown]
  - Injection site pain [Unknown]
  - Intercepted product storage error [Unknown]
  - Inappropriate schedule of product administration [Unknown]
